FAERS Safety Report 5157789-6 (Version None)
Quarter: 2006Q4

REPORT INFORMATION
  Report Type: 
  Country: None (occurrence: None)
  Receive Date: 20061116
  Receipt Date: 20061103
  Transmission Date: 20070319
  Serious: Yes (Hospitalization)
  Sender: FDA-Public Use
  Company Number: 2006136981

PATIENT
  Age: 21 Year
  Sex: Female

DRUGS (10)
  1. METHYLPREDNISOLONE SODIUM SUCCINATE [Suspect]
     Dosage: INTRAVENOUS
     Route: 042
     Dates: start: 20060727, end: 20060803
  2. TRAMADOL HCL [Suspect]
     Dosage: 300 MG (1 D)
     Dates: start: 20060804, end: 20060807
  3. PROZAC [Suspect]
     Dosage: 20 MG (1 D), ORAL
     Route: 048
     Dates: start: 20060728, end: 20060807
  4. LEXOMIL (BROMAZEPAM) [Concomitant]
  5. POTASSIUM CHLORIDE [Concomitant]
  6. SODIUM CHLORIDE 0.9% [Concomitant]
  7. OMEPRAZOLE [Concomitant]
  8. LOVENOX [Concomitant]
  9. ACETAMINOPHEN [Concomitant]
  10. FLUCONAZOLE [Concomitant]

REACTIONS (2)
  - NERVOUS SYSTEM DISORDER [None]
  - REVERSIBLE POSTERIOR LEUKOENCEPHALOPATHY SYNDROME [None]
